FAERS Safety Report 8780728 (Version 3)
Quarter: 2013Q1

REPORT INFORMATION
  Report Type: Report from Study
  Country: TR (occurrence: TR)
  Receive Date: 20120906
  Receipt Date: 20130221
  Transmission Date: 20140127
  Serious: Yes (Hospitalization)
  Sender: FDA-Public Use
  Company Number: TR-ELI_LILLY_AND_COMPANY-TR201207003976

PATIENT
  Age: 65 Year
  Sex: Male
  Weight: 67 kg

DRUGS (11)
  1. PEMETREXED [Suspect]
     Indication: NON-SMALL CELL LUNG CANCER STAGE III
     Dosage: 500 MG/M2, EVERY 3 WEEKS
     Route: 042
     Dates: start: 20120521, end: 20120611
  2. PEMETREXED [Suspect]
     Dosage: 375 MG/M2, UNKNOWN
     Route: 042
     Dates: start: 20120702, end: 20120702
  3. CISPLATIN [Suspect]
     Indication: NON-SMALL CELL LUNG CANCER STAGE III
     Dosage: 75 MG/M2, EVERY 3 WEEKS
     Route: 042
     Dates: start: 20120521, end: 20120611
  4. CISPLATIN [Suspect]
     Dosage: 50 MG/M2, UNKNOWN
     Route: 042
     Dates: start: 20120702, end: 20120702
  5. RADIATION [Suspect]
     Indication: NON-SMALL CELL LUNG CANCER STAGE III
     Dosage: 200 CGY/ FR, UNK
     Dates: start: 20120521, end: 20120705
  6. FOLIC ACID [Concomitant]
     Indication: PROPHYLAXIS
     Dosage: UNK
  7. VITAMIN B12 [Concomitant]
     Indication: PROPHYLAXIS
     Dosage: UNK
  8. DEXAMETHASONE [Concomitant]
     Indication: PROPHYLAXIS
     Dosage: UNK
  9. ANTEPSIN [Concomitant]
     Indication: MUCOSAL INFLAMMATION
     Dosage: UNK
     Dates: start: 20120528
  10. KYTRIL [Concomitant]
     Indication: VOMITING
     Dosage: UNK
     Dates: start: 20120528
  11. ISOSOURCE [Concomitant]
     Indication: MALNUTRITION
     Dosage: UNK
     Dates: start: 20120622, end: 20120710

REACTIONS (2)
  - Weight decreased [Not Recovered/Not Resolved]
  - Oesophagitis [Recovered/Resolved]
